FAERS Safety Report 6660336-0 (Version None)
Quarter: 2010Q1

REPORT INFORMATION
  Report Type: 
  Country: None (occurrence: None)
  Receive Date: 20100331
  Receipt Date: 20100323
  Transmission Date: 20100710
  Serious: Yes (Hospitalization, Other)
  Sender: FDA-Public Use
  Company Number: US-RANBAXY-2010US-30834

PATIENT

DRUGS (4)
  1. VERAPAMIL [Suspect]
     Indication: ANGINA UNSTABLE
     Dosage: 80 MG, TID
     Route: 065
  2. METOPROLOL [Suspect]
     Indication: ANGINA UNSTABLE
     Dosage: 50 MG, BID
     Route: 065
  3. METOPROLOL [Suspect]
     Dosage: 100 MG, BID
     Route: 065
  4. GLYCERYL TRINITRATE [Concomitant]
     Indication: ANGINA UNSTABLE
     Route: 065

REACTIONS (4)
  - ANGINA PECTORIS [None]
  - ATRIOVENTRICULAR BLOCK SECOND DEGREE [None]
  - DRUG INTERACTION [None]
  - OFF LABEL USE [None]
